FAERS Safety Report 14941212 (Version 2)
Quarter: 2018Q2

REPORT INFORMATION
  Report Type: Spontaneous
  Country: AT (occurrence: AT)
  Receive Date: 20180525
  Receipt Date: 20180530
  Transmission Date: 20180711
  Serious: Yes (Other)
  Sender: FDA-Public Use
  Company Number: AT-009507513-1805AUT001155

PATIENT
  Age: 33 Year
  Sex: Male

DRUGS (3)
  1. KEYTRUDA [Suspect]
     Active Substance: PEMBROLIZUMAB
     Indication: GERM CELL CANCER METASTATIC
     Dosage: 100 MG, EVERY 3 WEEKS
     Route: 042
     Dates: start: 20170613, end: 20170815
  2. KEYTRUDA [Suspect]
     Active Substance: PEMBROLIZUMAB
     Dosage: 100 MG, EVERY 3 WEEKS
     Dates: start: 201712
  3. ADCETRIS [Suspect]
     Active Substance: BRENTUXIMAB VEDOTIN
     Indication: GERM CELL CANCER METASTATIC
     Dosage: 100 MG, EVERY 3 WEEKS
     Route: 042
     Dates: start: 20170321, end: 201801

REACTIONS (2)
  - Off label use [Unknown]
  - Immune-mediated hepatitis [Recovering/Resolving]

NARRATIVE: CASE EVENT DATE: 20170613
